FAERS Safety Report 8090821-9 (Version None)
Quarter: 2012Q1

REPORT INFORMATION
  Report Type: 
  Country: None (occurrence: None)
  Receive Date: 20120125
  Receipt Date: 20120116
  Transmission Date: 20120608
  Serious: Yes (Death, Hospitalization)
  Sender: FDA-Public Use
  Company Number: 2012MA000762

PATIENT
  Age: 20 Year
  Sex: Male

DRUGS (6)
  1. FEVERALL [Suspect]
  2. ERYTHROMYCIN [Suspect]
  3. AMOXICILLIN [Suspect]
  4. LOPERAMIDE [Suspect]
  5. IRON (IRON) [Suspect]
  6. TRICYCLIC ANTIDEPRESSANTS (TRICYCLIC ANTIDEPRESSANTS) [Suspect]

REACTIONS (9)
  - LIVER INJURY [None]
  - CHOLESTASIS [None]
  - BRAIN OEDEMA [None]
  - SEPSIS [None]
  - TOXICITY TO VARIOUS AGENTS [None]
  - PUPILLARY DISORDER [None]
  - BRAIN HERNIATION [None]
  - HEPATIC NECROSIS [None]
  - MULTIPLE DRUG OVERDOSE [None]
